FAERS Safety Report 6368304-3 (Version None)
Quarter: 2009Q3

REPORT INFORMATION
  Report Type: 
  Country: None (occurrence: None)
  Receive Date: 20090922
  Receipt Date: 20090911
  Transmission Date: 20100115
  Serious: Yes (Death, Hospitalization, Other)
  Sender: FDA-Public Use
  Company Number: GB-ROCHE-657033

PATIENT
  Age: 61 Year
  Sex: Male

DRUGS (9)
  1. MYCOPHENOLATE MOFETIL [Suspect]
     Dosage: INDUCTION DOSE
     Route: 065
     Dates: start: 20061101
  2. MYCOPHENOLATE MOFETIL [Suspect]
     Dosage: DOSE REDUCED BY 75%
     Route: 065
  3. METHYLPREDNISOLONE [Suspect]
     Dosage: ON INDUCTION
     Route: 065
     Dates: start: 20061101
  4. METHYLPREDNISOLONE [Suspect]
     Dosage: TWO DOSES OF 1 MG AND 500 MG WERE ADMINISTERED; ROUTE: INTRAVENOUS
     Route: 065
  5. CYCLOSPORINE [Suspect]
     Route: 065
     Dates: start: 20061101
  6. CYCLOSPORINE [Suspect]
     Dosage: DOSE REDUCED BY 75%
     Route: 065
  7. RABBIT ANTITHYMOCYTE GLOBULIN [Concomitant]
     Indication: PREMEDICATION
     Dosage: 3 DOSES OF 2 MG/KG EACH
  8. NEUPOGEN [Concomitant]
  9. RITUXIMAB [Concomitant]
     Dosage: WEEKLY DOSES

REACTIONS (19)
  - ABDOMINAL PAIN [None]
  - ANEURYSM RUPTURED [None]
  - AORTIC ANEURYSM [None]
  - ARTERIAL DISORDER [None]
  - CIRCULATORY COLLAPSE [None]
  - COLECTOMY [None]
  - COUGH [None]
  - DYSPNOEA EXERTIONAL [None]
  - EPSTEIN-BARR VIRUS ASSOCIATED LYMPHOPROLIFERATIVE DISORDER [None]
  - HAEMODYNAMIC INSTABILITY [None]
  - HAEMORRHAGE [None]
  - HYPOXIA [None]
  - LEUKOPENIA [None]
  - LUNG TRANSPLANT REJECTION [None]
  - MULTI-ORGAN FAILURE [None]
  - OEDEMA MUCOSAL [None]
  - PULMONARY HILUM MASS [None]
  - PYREXIA [None]
  - SPLENIC ARTERY ANEURYSM [None]
